FAERS Safety Report 10064568 (Version 1)
Quarter: 2014Q1

REPORT INFORMATION
  Report Type: Spontaneous
  Country: US (occurrence: None)
  Receive Date: 20140328
  Receipt Date: 20140328
  Transmission Date: 20141002
  Serious: No
  Sender: FDA-Public Use
  Company Number: 1000054389

PATIENT
  Age: 77 Year
  Sex: Female

DRUGS (5)
  1. LINZESS [Suspect]
     Indication: CONSTIPATION
     Dosage: 145 MCG (145 MCG, 1 IN 1  D), ORAL
     Route: 048
     Dates: start: 20140218
  2. LINZESS [Suspect]
     Indication: GASTROINTESTINAL MOTILITY DISORDER
     Dosage: 145 MCG (145 MCG, 1 IN 1  D), ORAL
     Route: 048
     Dates: start: 20140218
  3. LINZESS [Suspect]
     Indication: NERVE COMPRESSION
     Dosage: 145 MCG (145 MCG, 1 IN 1  D), ORAL
     Route: 048
     Dates: start: 20140218
  4. OXYCODONE [Concomitant]
  5. XANAX (ALPRAZOLAM) [Concomitant]

REACTIONS (2)
  - Presyncope [None]
  - Off label use [None]
